FAERS Safety Report 5223794-4 (Version None)
Quarter: 2007Q1

REPORT INFORMATION
  Report Type: 
  Country: None (occurrence: None)
  Receive Date: 20070130
  Receipt Date: 20070118
  Transmission Date: 20070707
  Serious: Yes (Disabling, Other)
  Sender: FDA-Public Use
  Company Number: GB-BAYER-200610953BNE

PATIENT
  Age: 34 Year
  Sex: Female
  Weight: 92 kg

DRUGS (4)
  1. CLOTRIMAZOLE [Suspect]
     Indication: CANDIDIASIS
     Dates: start: 20060610
  2. ALLOPURINOL SODIUM [Concomitant]
  3. FOLIC ACID [Concomitant]
  4. METHOTREXATE [Concomitant]

REACTIONS (2)
  - LOCAL SWELLING [None]
  - SKIN BURNING SENSATION [None]
